FAERS Safety Report 9644804 (Version 1)
Quarter: 2013Q4

REPORT INFORMATION
  Report Type: Spontaneous
  Country: US (occurrence: None)
  Receive Date: 20131023
  Receipt Date: 20131023
  Transmission Date: 20140711
  Serious: Yes (Other)
  Sender: FDA-Public Use
  Company Number: None

PATIENT
  Age: 62 Year
  Sex: Female
  Weight: 72.58 kg

DRUGS (1)
  1. LATISSE ALLERGAN [Suspect]
     Indication: GROWTH OF EYELASHES
     Dates: start: 20101015, end: 20130515

REACTIONS (1)
  - Madarosis [None]
